FAERS Safety Report 5284765-5 (Version None)
Quarter: 2007Q1

REPORT INFORMATION
  Report Type: 
  Country: None (occurrence: None)
  Receive Date: 20061226
  Receipt Date: 20060913
  Transmission Date: 20070707
  Serious: No
  Sender: FDA-Public Use
  Company Number: 2006PV020282

PATIENT
  Age: 52 Year
  Sex: Female
  Weight: 68 kg

DRUGS (8)
  1. SYMLIN [Suspect]
     Indication: DIABETES MELLITUS
     Dosage: 120 MCG;TID;SC
     Route: 058
     Dates: start: 20060306, end: 20060417
  2. NPH INSULIN [Concomitant]
  3. PREDNISONE TAB [Concomitant]
  4. NEXIUM [Concomitant]
  5. LIPITOR [Concomitant]
  6. NORVASC [Concomitant]
  7. LASIX [Concomitant]
  8. NPH UNITS [Concomitant]

REACTIONS (5)
  - DYSPNOEA [None]
  - FUNGAL INFECTION [None]
  - LUNG NEOPLASM [None]
  - LUNG TRANSPLANT REJECTION [None]
  - WEIGHT DECREASED [None]
